FAERS Safety Report 6985729-3 (Version None)
Quarter: 2010Q3

REPORT INFORMATION
  Report Type: 
  Country: None (occurrence: None)
  Receive Date: 20100915
  Receipt Date: 20100825
  Transmission Date: 20110219
  Serious: Yes (Other)
  Sender: FDA-Public Use
  Company Number: US-ROCHE-642119

PATIENT
  Sex: Male
  Weight: 58 kg

DRUGS (8)
  1. TOCILIZUMAB [Suspect]
     Indication: RHEUMATOID ARTHRITIS
     Dosage: PERMANENTLY DISCONTINUED ON 15 JAN 2009.
     Route: 042
     Dates: start: 20081024, end: 20090115
  2. METHOTREXATE [Suspect]
     Indication: PRODUCT USED FOR UNKNOWN INDICATION
     Route: 058
     Dates: start: 20080506
  3. PREDNISONE [Suspect]
     Indication: PRODUCT USED FOR UNKNOWN INDICATION
     Route: 048
     Dates: start: 20070901
  4. PREDNISONE [Suspect]
     Route: 048
     Dates: start: 20090211
  5. FOLIC ACID [Concomitant]
     Route: 048
     Dates: start: 20080506
  6. MOTRIN [Concomitant]
     Dosage: DRUG REPORTED AS MOTRIM PM; AS REQUIRED
     Route: 048
     Dates: start: 20080506
  7. LEVAQUIN [Concomitant]
     Route: 048
     Dates: start: 20090107, end: 20090114
  8. ARTHROTEC [Concomitant]
     Dosage: DRUG REPORTED AS ARTHOTEC 75 PM.  DAILY DOSE: 75 MG/200 MCG.
     Route: 048
     Dates: start: 20081210

REACTIONS (1)
  - MALIGNANT NEOPLASM OF EYE [None]
